FAERS Safety Report 14768973 (Version 3)
Quarter: 2020Q4

REPORT INFORMATION
  Report Type: Spontaneous
  Country: US (occurrence: US)
  Receive Date: 20180417
  Receipt Date: 20201222
  Transmission Date: 20210113
  Serious: Yes (Death, Hospitalization)
  Sender: FDA-Public Use
  Company Number: US-JNJFOC-20180418813

PATIENT
  Age: 73 Year
  Sex: Female

DRUGS (2)
  1. XARELTO [Suspect]
     Active Substance: RIVAROXABAN
     Indication: DEEP VEIN THROMBOSIS
     Route: 048
     Dates: start: 20150323, end: 20150409
  2. XARELTO [Suspect]
     Active Substance: RIVAROXABAN
     Route: 048
     Dates: start: 20150410, end: 20150505

REACTIONS (5)
  - Pneumonia [Fatal]
  - Pulmonary embolism [Not Recovered/Not Resolved]
  - Encephalopathy [Fatal]
  - Lung neoplasm malignant [Fatal]
  - Septic shock [Fatal]

NARRATIVE: CASE EVENT DATE: 2015
